FAERS Safety Report 14732965 (Version 1)
Quarter: 2018Q2

REPORT INFORMATION
  Report Type: Spontaneous
  Country: US (occurrence: US)
  Receive Date: 20180409
  Receipt Date: 20180409
  Transmission Date: 20180711
  Serious: No
  Sender: FDA-Public Use
  Company Number: US-AUROBINDO-AUR-APU-2018-004315

PATIENT
  Age: 32 Year
  Sex: Female
  Weight: 129 kg

DRUGS (1)
  1. AZITHROMYCIN FOR INJECTION USP 500MG [Suspect]
     Active Substance: AZITHROMYCIN
     Indication: INFECTION
     Dosage: UNK, ONCE
     Dates: start: 20180126

REACTIONS (1)
  - Product storage error [Unknown]

NARRATIVE: CASE EVENT DATE: 20180126
